FAERS Safety Report 12526438 (Version 1)
Quarter: 2016Q3

REPORT INFORMATION
  Report Type: Spontaneous
  Country: US (occurrence: US)
  Receive Date: 20160705
  Receipt Date: 20160705
  Transmission Date: 20161109
  Serious: No
  Sender: FDA-Public Use
  Company Number: US-TEVA-592141USA

PATIENT
  Sex: Male
  Weight: 77.18 kg

DRUGS (3)
  1. FINASTERIDE. [Suspect]
     Active Substance: FINASTERIDE
     Indication: BENIGN PROSTATIC HYPERPLASIA
  2. FINASTERIDE. [Suspect]
     Active Substance: FINASTERIDE
     Indication: BLADDER OBSTRUCTION
  3. FINASTERIDE. [Suspect]
     Active Substance: FINASTERIDE
     Indication: BENIGN PROSTATIC HYPERPLASIA
     Dates: start: 20150323

REACTIONS (3)
  - Benign prostatic hyperplasia [Unknown]
  - Dysuria [Unknown]
  - Drug ineffective [Unknown]
